FAERS Safety Report 21994694 (Version 1)
Quarter: 2023Q1

REPORT INFORMATION
  Report Type: Spontaneous
  Country: CA (occurrence: CA)
  Receive Date: 20230215
  Receipt Date: 20230215
  Transmission Date: 20230418
  Serious: Yes (Life-Threatening, Hospitalization, Other)
  Sender: FDA-Public Use
  Company Number: CA-PFIZER INC-202300063680

PATIENT
  Age: 77 Year
  Sex: Male

DRUGS (1)
  1. FLUCONAZOLE [Suspect]
     Active Substance: FLUCONAZOLE
     Indication: Funguria
     Dosage: UNK

REACTIONS (6)
  - Blood lactic acid increased [Recovered/Resolved]
  - Bradycardia [Recovered/Resolved]
  - Hyperkalaemia [Recovered/Resolved]
  - Hypernatraemia [Recovered/Resolved]
  - Hypothermia [Recovered/Resolved]
  - Loss of consciousness [Recovered/Resolved]
